FAERS Safety Report 6209136-6 (Version None)
Quarter: 2009Q2

REPORT INFORMATION
  Report Type: 
  Country: None (occurrence: None)
  Receive Date: 20090529
  Receipt Date: 20090518
  Transmission Date: 20091009
  Serious: Yes (Other)
  Sender: FDA-Public Use
  Company Number: GB-JNJFOC-20090504249

PATIENT
  Age: 41 Year
  Sex: Female
  Weight: 88 kg

DRUGS (6)
  1. INFLIXIMAB, RECOMBINANT [Suspect]
     Indication: RHEUMATOID ARTHRITIS
     Route: 042
  2. ARTHROTEC [Concomitant]
  3. ATENOLOL [Concomitant]
  4. PRAVASTATIN [Concomitant]
  5. METHOTREXATE [Concomitant]
  6. HORMONE REPLACEMENT THERAPY [Concomitant]

REACTIONS (1)
  - BREAST CANCER [None]
